FAERS Safety Report 7587076-8 (Version None)
Quarter: 2011Q3

REPORT INFORMATION
  Report Type: 
  Country: None (occurrence: None)
  Receive Date: 20110701
  Receipt Date: 20110620
  Transmission Date: 20111222
  Serious: Yes (Disabling, Other)
  Sender: FDA-Public Use
  Company Number: PHHY2011VE55762

PATIENT
  Sex: Female

DRUGS (8)
  1. PROVAX [Concomitant]
     Dosage: 1 DF, BID
     Route: 048
     Dates: start: 19920101
  2. DAYAMINERAL [Concomitant]
     Dosage: UNK
     Route: 048
     Dates: start: 20000101
  3. CARDIPRIN [Concomitant]
     Indication: ARRHYTHMIA
     Dosage: UNK
     Route: 048
     Dates: start: 19920101
  4. FOLIC ACID [Concomitant]
     Dosage: UNK
     Route: 048
     Dates: start: 20000101
  5. EXELON [Suspect]
     Indication: DEMENTIA ALZHEIMER'S TYPE
     Dosage: 3 MG, TID
     Dates: start: 19980101, end: 20020101
  6. EXELON [Suspect]
     Dosage: 3 MG, UNK
     Dates: start: 20030101
  7. AMIODARONE HCL [Concomitant]
     Dosage: UNK
     Route: 048
  8. CITAMIN C AND E [Concomitant]
     Dosage: UNK
     Route: 048

REACTIONS (2)
  - CONVULSION [None]
  - LOWER LIMB FRACTURE [None]
